FAERS Safety Report 4708858-3 (Version None)
Quarter: 2005Q3

REPORT INFORMATION
  Report Type: 
  Country: None (occurrence: None)
  Receive Date: 20050705
  Receipt Date: 20050624
  Transmission Date: 20060218
  Serious: Yes (Death, Life-Threatening, Other)
  Sender: FDA-Public Use
  Company Number: 2005FR-00038

PATIENT
  Age: 63 Year
  Sex: Male
  Weight: 75 kg

DRUGS (5)
  1. FLUOXETINE [Suspect]
     Indication: DEPRESSION
     Dosage: 20MG, ORAL
     Route: 048
     Dates: start: 20050311, end: 20050316
  2. PAROXETINE HCL [Concomitant]
  3. BECLOMETHASONE DIPROPIONATE [Concomitant]
  4. SALBUTAMOL [Concomitant]
  5. SALMETEROL [Concomitant]

REACTIONS (4)
  - AGITATION [None]
  - RESTLESSNESS [None]
  - SLEEP DISORDER [None]
  - SUICIDAL IDEATION [None]
